FAERS Safety Report 4958246-X (Version None)
Quarter: 2006Q1

REPORT INFORMATION
  Report Type: 
  Country: None (occurrence: None)
  Receive Date: 20060330
  Receipt Date: 20060320
  Transmission Date: 20060701
  Serious: Yes (Hospitalization)
  Sender: FDA-Public Use
  Company Number: 205203

PATIENT
  Age: 74 Year
  Sex: Female

DRUGS (13)
  1. AMOXYCILLIN SODIUM [Suspect]
     Dosage: 500MG THREE TIMES PER DAY
     Route: 048
     Dates: start: 20041123, end: 20041207
  2. AUGMENTIN '125' [Suspect]
     Route: 048
  3. RULIDE [Suspect]
     Dosage: 150MG TWICE PER DAY
     Route: 048
     Dates: start: 20041207, end: 20041212
  4. DICLOCIL [Suspect]
     Dosage: 500MG FOUR TIMES PER DAY
     Route: 048
     Dates: start: 20041216, end: 20041224
  5. E.E.S. [Suspect]
     Dosage: 800MG TWICE PER DAY
     Dates: start: 20050105, end: 20050111
  6. BETOPTIC [Concomitant]
     Route: 047
  7. CALTRATE [Concomitant]
     Dosage: 1200MG PER DAY
  8. LIPITOR [Concomitant]
     Dosage: 20MG PER DAY
     Route: 048
  9. LIVIAL [Concomitant]
     Dosage: 2MG PER DAY
     Route: 048
  10. ASPIRIN [Concomitant]
     Dosage: 100MG PER DAY
     Route: 048
  11. NATRILIX SR [Concomitant]
     Dosage: 2MG PER DAY
     Route: 048
  12. MOBIC [Concomitant]
     Dosage: 8MG PER DAY
     Route: 048
  13. CECLOR [Concomitant]
     Route: 048
     Dates: start: 20041213, end: 20041218

REACTIONS (2)
  - HEPATIC FUNCTION ABNORMAL [None]
  - JAUNDICE [None]
